FAERS Safety Report 11787566 (Version 3)
Quarter: 2015Q4

REPORT INFORMATION
  Report Type: Report from Study
  Country: AU (occurrence: AU)
  Receive Date: 20151130
  Receipt Date: 20151207
  Transmission Date: 20160305
  Serious: Yes (Death, Life-Threatening, Hospitalization)
  Sender: FDA-Public Use
  Company Number: AU-ABBVIE-15P-008-1508109-00

PATIENT
  Age: 76 Year
  Sex: Female

DRUGS (8)
  1. FELODIPINE. [Suspect]
     Active Substance: FELODIPINE
     Indication: PRODUCT USED FOR UNKNOWN INDICATION
     Route: 065
  2. SPIRACTIN [Concomitant]
     Active Substance: SPIRONOLACTONE
     Indication: PRODUCT USED FOR UNKNOWN INDICATION
  3. ATENOLOL. [Concomitant]
     Active Substance: ATENOLOL
     Indication: PRODUCT USED FOR UNKNOWN INDICATION
  4. VIEKIRA PAK-RBV [Suspect]
     Active Substance: DASABUVIR\OMBITASVIR\PARITAPREVIR\RIBAVIRIN\RITONAVIR
     Indication: HEPATITIS C
     Dosage: DASABUVIR QD: PARITAPREVIR/OMBISTASVIR/RITONAVIR BID: RIBAVIRIN BID
     Route: 048
     Dates: start: 20151111, end: 20151116
  5. FOLIC ACID. [Concomitant]
     Active Substance: FOLIC ACID
     Indication: PRODUCT USED FOR UNKNOWN INDICATION
  6. THYROXINE [Concomitant]
     Active Substance: LEVOTHYROXINE
     Indication: PRODUCT USED FOR UNKNOWN INDICATION
  7. RANITIDINE [Concomitant]
     Active Substance: RANITIDINE\RANITIDINE HYDROCHLORIDE
     Indication: PRODUCT USED FOR UNKNOWN INDICATION
  8. OMEPRAZOLE. [Concomitant]
     Active Substance: OMEPRAZOLE
     Indication: PRODUCT USED FOR UNKNOWN INDICATION

REACTIONS (19)
  - Hyponatraemia [Unknown]
  - Blood bilirubin increased [Unknown]
  - Adverse drug reaction [Fatal]
  - Retching [Unknown]
  - Condition aggravated [Unknown]
  - Decreased appetite [Unknown]
  - Acute kidney injury [Unknown]
  - Anaemia [Unknown]
  - Peripheral ischaemia [Unknown]
  - Nausea [Unknown]
  - Hepatic failure [Unknown]
  - Multi-organ failure [Unknown]
  - Rhabdomyolysis [Unknown]
  - Fatigue [Unknown]
  - Headache [Unknown]
  - Bradycardia [Unknown]
  - Loss of consciousness [Unknown]
  - Stevens-Johnson syndrome [Fatal]
  - Vasculitic rash [Unknown]

NARRATIVE: CASE EVENT DATE: 20151113
